FAERS Safety Report 9231738 (Version 1)
Quarter: 2013Q2

REPORT INFORMATION
  Report Type: Spontaneous
  Country: US (occurrence: US)
  Receive Date: 20130415
  Receipt Date: 20130415
  Transmission Date: 20140414
  Serious: Yes (Other)
  Sender: FDA-Public Use
  Company Number: US-BAYER-2013-046852

PATIENT
  Age: 80 Year
  Sex: Female
  Weight: 79 kg

DRUGS (5)
  1. ALKA-SELTZER ORIGINAL [Suspect]
     Indication: GASTRIC DISORDER
     Dosage: ONE DAILY AT LUNCH
     Dates: start: 20130311, end: 20130311
  2. OSTEO BI-FLEX (OSTEO BI-FLEX) [Interacting]
     Indication: NUTRITIONAL SUPPLEMENTATION
     Dosage: 1 DF, QD
     Route: 048
     Dates: start: 20130301, end: 20130311
  3. VITAMIN D3 [Concomitant]
     Dosage: 4000IU DAILY
  4. VITAMIN C [Concomitant]
     Dosage: 500MG DAILY
  5. MULTIVITAMIN [Concomitant]

REACTIONS (7)
  - Abdominal pain upper [Recovered/Resolved]
  - Cardiac disorder [Recovered/Resolved]
  - Loss of consciousness [Recovered/Resolved]
  - Feeling jittery [Recovered/Resolved]
  - Anxiety [Recovered/Resolved]
  - Drug interaction [Recovered/Resolved]
  - Blood pressure increased [Recovered/Resolved]
